FAERS Safety Report 24316365 (Version 1)
Quarter: 2024Q3

REPORT INFORMATION
  Report Type: Spontaneous
  Country: FR (occurrence: FR)
  Receive Date: 20240913
  Receipt Date: 20240913
  Transmission Date: 20241017
  Serious: Yes (Other)
  Sender: MYLAN
  Company Number: None

PATIENT
  Age: 57 Year
  Sex: Male
  Weight: 85 kg

DRUGS (1)
  1. ETOPOSIDE [Suspect]
     Active Substance: ETOPOSIDE
     Indication: Prostate cancer metastatic
     Dosage: 410 MILLIGRAM (210MG CYCLE 1DAY 2 AND 210MG CYCLE 1 DAY3)
     Route: 042
     Dates: start: 20240820, end: 20240821

REACTIONS (2)
  - Electrocardiogram ST segment depression [Recovered/Resolved]
  - Chest pain [Recovered/Resolved]

NARRATIVE: CASE EVENT DATE: 20240820
